FAERS Safety Report 5938074-9 (Version None)
Quarter: 2008Q4

REPORT INFORMATION
  Report Type: 
  Country: None (occurrence: None)
  Receive Date: 20081031
  Receipt Date: 20081023
  Transmission Date: 20090506
  Serious: Yes (Hospitalization, Other)
  Sender: FDA-Public Use
  Company Number: PHHY2008ID25624

PATIENT
  Sex: Male

DRUGS (3)
  1. CATAFLAM [Suspect]
     Indication: ANALGESIC THERAPY
     Dosage: 100 MG (2 X 50 MG)
     Route: 048
     Dates: start: 20081016
  2. CATAFLAM [Suspect]
     Indication: ANTIINFLAMMATORY THERAPY
  3. CLINDAMYCIN HCL [Suspect]
     Indication: COUGH

REACTIONS (4)
  - DYSPNOEA [None]
  - LOSS OF CONSCIOUSNESS [None]
  - PARAESTHESIA [None]
  - RASH [None]
